FAERS Safety Report 4789341-6 (Version None)
Quarter: 2005Q3

REPORT INFORMATION
  Report Type: 
  Country: None (occurrence: None)
  Receive Date: 20050929
  Receipt Date: 20050811
  Transmission Date: 20060218
  Serious: No
  Sender: FDA-Public Use
  Company Number: 05P-163-0308108-00

PATIENT
  Age: 34 Year
  Sex: Female

DRUGS (8)
  1. HUMIRA [Suspect]
     Indication: RHEUMATOID ARTHRITIS
     Dosage: 40 MG, 1 IN 2 WK, SUBCUTANEOUS
     Route: 058
     Dates: start: 20050201
  2. PROVELLA-14 [Concomitant]
  3. CLONAZEPAM [Concomitant]
  4. HYDROCHLOROTHIAZIDE [Concomitant]
  5. ESOMEPRAZOLE [Concomitant]
  6. TRAZODONE [Concomitant]
  7. COMBIVENT [Concomitant]
  8. ALBUTEROL [Concomitant]

REACTIONS (1)
  - INJECTION SITE IRRITATION [None]
